FAERS Safety Report 15277862 (Version 2)
Quarter: 2018Q3

REPORT INFORMATION
  Report Type: Spontaneous
  Country: None (occurrence: US)
  Receive Date: 20180814
  Receipt Date: 20180821
  Transmission Date: 20181010
  Serious: No
  Sender: FDA-Public Use
  Company Number: US-MERZ NORTH AMERICA, INC.-18MRZ-00406

PATIENT
  Sex: Female
  Weight: 36.32 kg

DRUGS (2)
  1. XEOMIN [Suspect]
     Active Substance: INCOBOTULINUMTOXINA
     Indication: DYSTONIA
     Dosage: UNKNOWN
     Dates: start: 20180604, end: 20180604
  2. BACLOFEN. [Concomitant]
     Active Substance: BACLOFEN
     Indication: DYSTONIA

REACTIONS (2)
  - Incorrect dosage administered [Unknown]
  - Respiration abnormal [Unknown]
